FAERS Safety Report 26085088 (Version 1)
Quarter: 2025Q4

REPORT INFORMATION
  Report Type: Spontaneous
  Country: US (occurrence: US)
  Receive Date: 20251125
  Receipt Date: 20251125
  Transmission Date: 20260119
  Serious: No
  Sender: QILU ANTIBIOTICS PHARMACEUTICAL
  Company Number: US-QILU ANTIBIOTICS PHARMACEUTICAL CO. LTD-QLA-000047-2025

PATIENT
  Age: 33 Year
  Sex: Female
  Weight: 44 kg

DRUGS (2)
  1. CEFTRIAXONE [Suspect]
     Active Substance: CEFTRIAXONE
     Indication: Urinary tract infection
     Dosage: 1 G ADMINISTERED ONCE OVER 5 MINS
     Route: 042
     Dates: start: 20250612
  2. DIPHENHYDRAMINE [Concomitant]
     Active Substance: DIPHENHYDRAMINE
     Indication: Product used for unknown indication
     Dosage: 37.5 MG
     Route: 042
     Dates: start: 202506, end: 202506

REACTIONS (3)
  - Erythema [Recovered/Resolved]
  - Dyspnoea [Unknown]
  - Injection site pruritus [Recovered/Resolved]

NARRATIVE: CASE EVENT DATE: 20250601
